FAERS Safety Report 9243437 (Version 2)
Quarter: 2013Q2

REPORT INFORMATION
  Report Type: Spontaneous
  Country: US (occurrence: US)
  Receive Date: 20130421
  Receipt Date: 20130524
  Transmission Date: 20140414
  Serious: No
  Sender: FDA-Public Use
  Company Number: US-ROXANE LABORATORIES, INC.-2013-RO-00534RO

PATIENT
  Sex: Female

DRUGS (2)
  1. FLUTICASONE [Suspect]
     Indication: SINUSITIS
     Route: 045
  2. TRACLEER [Concomitant]
     Indication: PULMONARY HYPERTENSION

REACTIONS (2)
  - Adverse event [Unknown]
  - Product quality issue [Unknown]
